FAERS Safety Report 9243143 (Version 1)
Quarter: 2013Q2

REPORT INFORMATION
  Report Type: Spontaneous
  Country: TR (occurrence: TR)
  Receive Date: 20130419
  Receipt Date: 20130419
  Transmission Date: 20140414
  Serious: Yes (Hospitalization, Other)
  Sender: FDA-Public Use
  Company Number: TR-VERTEX PHARMACEUTICALS INC.-2013-004334

PATIENT
  Age: 63 Year
  Sex: Female

DRUGS (8)
  1. INCIVO [Suspect]
     Indication: CHRONIC HEPATITIS C
     Dosage: TABLET, 750 MG, TID
     Route: 048
     Dates: start: 20130204
  2. PEGASYS [Suspect]
     Indication: CHRONIC HEPATITIS C
     Dosage: DOSAGE FORM: UNSPECIFIED
     Route: 065
     Dates: start: 20130204
  3. PEGASYS [Suspect]
     Dosage: DOSAGE FORM: UNSPECIFIED
     Route: 065
     Dates: start: 20130318
  4. PEGASYS [Suspect]
     Dosage: DOSAGE FORM: UNSPECIFIED
     Route: 065
     Dates: start: 20130224
  5. COPEGUS [Suspect]
     Indication: CHRONIC HEPATITIS C
     Dosage: DOSAGE FORM: UNSPECIFIED
     Route: 048
     Dates: start: 20130204
  6. COPEGUS [Suspect]
     Dosage: DOSAGE FORM: UNSPECIFIED
     Route: 048
     Dates: start: 20130318
  7. COPEGUS [Suspect]
     Dosage: DOSAGE FORM: UNSPECIFIED
     Route: 048
     Dates: start: 20130224
  8. GLUKOFEN [Concomitant]
     Indication: DIABETES MELLITUS

REACTIONS (5)
  - Decubitus ulcer [Recovered/Resolved]
  - Blood count abnormal [Unknown]
  - Pruritus [Recovered/Resolved]
  - Anaemia [Unknown]
  - Thrombocytopenia [Unknown]
